FAERS Safety Report 6962491-1 (Version None)
Quarter: 2010Q3

REPORT INFORMATION
  Report Type: 
  Country: None (occurrence: None)
  Receive Date: 20100902
  Receipt Date: 20100813
  Transmission Date: 20110219
  Serious: Yes (Other)
  Sender: FDA-Public Use
  Company Number: US-BAYER-201026504NA

PATIENT
  Age: 40 Year
  Sex: Male
  Weight: 92 kg

DRUGS (29)
  1. CAMPATH [Suspect]
     Indication: MULTIPLE SCLEROSIS
     Dosage: TOTAL DAILY DOSE: 12 MG
     Route: 042
     Dates: start: 20090601, end: 20090605
  2. CAMPATH [Suspect]
     Dosage: TOTAL DAILY DOSE: 12 MG
     Route: 042
     Dates: start: 20100614, end: 20100616
  3. METHYLPREDNISOLONE [Suspect]
     Indication: MULTIPLE SCLEROSIS
     Route: 042
     Dates: start: 20100614, end: 20100616
  4. METHYLPREDNISOLONE [Concomitant]
     Route: 042
     Dates: start: 20100614, end: 20100616
  5. METHYLPREDNISOLONE [Concomitant]
     Dates: start: 20090601, end: 20090603
  6. OXYCODONE HCL AND ACETAMINOPHEN [Concomitant]
     Dates: start: 20081001
  7. VITAMIN B COMPLEX CAP [Concomitant]
     Dates: start: 20081001
  8. IBUPROFEN [Concomitant]
     Dates: start: 19860101
  9. TREXIMET [Concomitant]
     Dates: start: 20001001
  10. TREXIMET [Concomitant]
     Dates: start: 20001001
  11. CALCIUM [Concomitant]
     Dates: start: 20071001
  12. ASCORBIC ACID [Concomitant]
     Dates: start: 20081001
  13. ZYRTEC [Concomitant]
     Dates: start: 20090530
  14. TYLENOL-500 [Concomitant]
     Dates: start: 20090610
  15. ZOFRAN [Concomitant]
     Dates: start: 20090610
  16. EVOCLIN [Concomitant]
     Dates: start: 20090723
  17. CITALOPRAM HYDROBROMIDE [Concomitant]
     Dates: start: 20090708
  18. BACLOFEN [Concomitant]
     Dates: start: 20090817
  19. NEURONTIN [Concomitant]
     Dates: start: 20090928
  20. DIASTAT [Concomitant]
     Dates: start: 20091028
  21. MIRALAX [Concomitant]
     Dates: start: 20091101
  22. VALIUM [Concomitant]
     Dates: start: 20091201
  23. LAMICTAL [Concomitant]
     Dosage: XR
     Dates: start: 20100106
  24. KEPPRA [Concomitant]
     Dates: start: 20100609, end: 20100708
  25. KEPPRA [Concomitant]
     Dates: start: 20100609, end: 20100716
  26. KEPPRA [Concomitant]
     Dates: start: 20100609
  27. PEPCID [Concomitant]
     Dates: start: 20100612, end: 20100618
  28. ATARAX [Concomitant]
     Dates: start: 20100614, end: 20100616
  29. ACYCLOVIR SODIUM [Concomitant]
     Dates: start: 20100614, end: 20100715

REACTIONS (1)
  - ATRIOVENTRICULAR BLOCK [None]
